FAERS Safety Report 15955121 (Version 12)
Quarter: 2019Q3

REPORT INFORMATION
  Report Type: Spontaneous
  Country: US (occurrence: US)
  Receive Date: 20190213
  Receipt Date: 20190702
  Transmission Date: 20191004
  Serious: No
  Sender: FDA-Public Use
  Company Number: US-PFIZER INC-2019053935

PATIENT
  Age: 44 Year
  Sex: Female
  Weight: 49.89 kg

DRUGS (4)
  1. BICILLIN L-A [Suspect]
     Active Substance: PENICILLIN G BENZATHINE
     Indication: INFECTION
     Dosage: 1200000 IU, WEEKLY
     Dates: start: 2018
  2. BICILLIN L-A [Suspect]
     Active Substance: PENICILLIN G BENZATHINE
     Dosage: 1200000 IU, WEEKLY
  3. BICILLIN L-A [Suspect]
     Active Substance: PENICILLIN G BENZATHINE
     Dosage: 1.2 MILLION IU, WEEKLY
     Route: 030
  4. BICILLIN L-A [Suspect]
     Active Substance: PENICILLIN G BENZATHINE
     Indication: LYME DISEASE
     Dosage: 1200000 IU, 2X/WEEK

REACTIONS (5)
  - Poor quality product administered [Recovered/Resolved]
  - Injection site pain [Recovered/Resolved]
  - Palpitations [Unknown]
  - Product quality issue [Unknown]
  - Drug resistance [Unknown]
